FAERS Safety Report 11391978 (Version 2)
Quarter: 2015Q3

REPORT INFORMATION
  Report Type: Spontaneous
  Country: ES (occurrence: ES)
  Receive Date: 20150818
  Receipt Date: 20150828
  Transmission Date: 20151125
  Serious: Yes (Other)
  Sender: FDA-Public Use
  Company Number: ES-PFIZER INC-2015272090

PATIENT
  Age: 42 Year
  Sex: Male

DRUGS (16)
  1. MORPHINE [Concomitant]
     Active Substance: MORPHINE
     Indication: DEPRESSIVE SYMPTOM
     Dosage: 5 MG, 4X/DAY (5MG/6H)
     Route: 042
  2. MORPHINE SULFATE/NALTREXONE HYDROCHLORIDE [Concomitant]
     Active Substance: MORPHINE SULFATE\NALTREXONE HYDROCHLORIDE
     Dosage: 10 UNK, 2X/DAY (10-0-10)
  3. AMITRIPTILINA [Suspect]
     Active Substance: AMITRIPTYLINE HYDROCHLORIDE
     Indication: NEURALGIA
     Dosage: 25 MG, 1X/DAY (0-0-25MG)
     Route: 048
  4. ADOLONTA [Concomitant]
     Active Substance: TRAMADOL HYDROCHLORIDE
     Indication: PAIN
     Dosage: 100 MG (ONE BEFORE GOING TO BED AND OCCASIONALLY THROUGHOUT THE DAY AT THE BEGINNING OF TREATMENT)
  5. PARACETAMOL [Suspect]
     Active Substance: ACETAMINOPHEN
     Dosage: 1 G, 3X/DAY (1G/8H)
     Route: 048
  6. PREGABALIN. [Suspect]
     Active Substance: PREGABALIN
     Dosage: 150 MG, 2X/DAY (150MG-0-150MG)
     Route: 048
  7. ENANTYUN [Concomitant]
     Active Substance: DEXKETOPROFEN TROMETAMOL
     Dosage: 25 UNK, 3X/DAY (25/8H)
     Route: 048
  8. PREGABALIN. [Suspect]
     Active Substance: PREGABALIN
     Indication: NEURALGIA
     Dosage: UNK UNK, 2X/DAY (75-0-150)
  9. OXYCONTIN [Suspect]
     Active Substance: OXYCODONE HYDROCHLORIDE
     Indication: NEURALGIA
     Dosage: 10 MG, 2X/DAY (10-0-10MG)
     Route: 048
  10. AMITRIPTILINA [Suspect]
     Active Substance: AMITRIPTYLINE HYDROCHLORIDE
     Dosage: UP TO 75MG AT NIGHT
     Route: 048
  11. DISTRANEURINE [Concomitant]
     Active Substance: CLOMETHIAZOLE
     Indication: DEPRESSIVE SYMPTOM
     Dosage: UNK
  12. BROMAZEPAM [Concomitant]
     Active Substance: BROMAZEPAM
     Indication: DEPRESSIVE SYMPTOM
     Dosage: 2 DF, 2X/DAY (/12H)
     Route: 048
  13. TRAMADOL. [Concomitant]
     Active Substance: TRAMADOL
     Indication: DEPRESSIVE SYMPTOM
     Dosage: 100 MG, 3X/DAY (100MG/8H)
     Route: 042
  14. PARACETAMOL [Suspect]
     Active Substance: ACETAMINOPHEN
     Indication: NEURALGIA
     Dosage: 1 G, 3X/DAY (1G/8H)
     Route: 042
  15. BROMAZEPAM [Concomitant]
     Active Substance: BROMAZEPAM
     Indication: PROPHYLAXIS
  16. METAMIZOLE [Concomitant]
     Active Substance: METAMIZOLE
     Indication: DEPRESSIVE SYMPTOM
     Dosage: 2 G, 3X/DAY (2G/8H)
     Route: 042

REACTIONS (6)
  - Incoherent [Unknown]
  - Confusional state [Unknown]
  - Unresponsive to stimuli [Unknown]
  - Dissociation [Unknown]
  - Stupor [Unknown]
  - Psychomotor hyperactivity [Unknown]

NARRATIVE: CASE EVENT DATE: 20110808
